FAERS Safety Report 4672639-X (Version None)
Quarter: 2005Q2

REPORT INFORMATION
  Report Type: 
  Country: None (occurrence: None)
  Receive Date: 20050524
  Receipt Date: 20050509
  Transmission Date: 20051028
  Serious: Yes (Hospitalization)
  Sender: FDA-Public Use
  Company Number: FR-GLAXOSMITHKLINE-B0380309A

PATIENT
  Age: 46 Year
  Sex: Female

DRUGS (2)
  1. SUDAFED 12 HOUR [Suspect]
     Indication: MIGRAINE
     Route: 048
  2. NUROFEN [Suspect]
     Indication: MIGRAINE
     Route: 048

REACTIONS (5)
  - CHEILITIS [None]
  - ENANTHEMA [None]
  - PYREXIA [None]
  - RASH PAPULAR [None]
  - TOXIC SKIN ERUPTION [None]
